FAERS Safety Report 4946753-5 (Version None)
Quarter: 2006Q1

REPORT INFORMATION
  Report Type: 
  Country: None (occurrence: None)
  Receive Date: 20060201
  Receipt Date: 20051214
  Transmission Date: 20060701
  Serious: No
  Sender: FDA-Public Use
  Company Number: 2005PV005845

PATIENT
  Age: 87 Year
  Sex: Male
  Weight: 83.9154 kg

DRUGS (2)
  1. BYETTA [Suspect]
     Indication: DIABETES MELLITUS NON-INSULIN-DEPENDENT
     Dosage: 5 MCG; BID; SC
     Route: 058
     Dates: start: 20050801
  2. GLIPIZIDE ER [Concomitant]

REACTIONS (3)
  - ARTHRALGIA [None]
  - ARTHROPATHY [None]
  - PAIN [None]
